FAERS Safety Report 4922612-9 (Version None)
Quarter: 2006Q1

REPORT INFORMATION
  Report Type: 
  Country: None (occurrence: None)
  Receive Date: 20060224
  Receipt Date: 20060215
  Transmission Date: 20060701
  Serious: Yes (Hospitalization)
  Sender: FDA-Public Use
  Company Number: PHHO2006RO02939

PATIENT
  Age: 38 Year
  Sex: Female

DRUGS (2)
  1. TRILEPTAL [Suspect]
     Indication: EPILEPSY
     Dosage: 600MG
     Route: 048
     Dates: start: 20051207, end: 20060213
  2. CARBAMAZEPINE [Concomitant]
     Indication: EPILEPSY
     Dates: start: 19780101

REACTIONS (2)
  - CEREBELLAR ATAXIA [None]
  - VESTIBULAR DISORDER [None]
